FAERS Safety Report 11549844 (Version 1)
Quarter: 2015Q3

REPORT INFORMATION
  Report Type: Spontaneous
  Country: US (occurrence: US)
  Receive Date: 20150924
  Receipt Date: 20150924
  Transmission Date: 20151125
  Serious: No
  Sender: FDA-Public Use
  Company Number: US-INCYTE CORPORATION-2015IN003733

PATIENT
  Age: 62 Year
  Sex: Female

DRUGS (15)
  1. DULOXETINE. [Concomitant]
     Active Substance: DULOXETINE
  2. WARFARIN [Concomitant]
     Active Substance: WARFARIN
  3. HYDROCHLOROTHIAZIDE W/LISINOPRIL [Concomitant]
     Active Substance: HYDROCHLOROTHIAZIDE\LISINOPRIL
  4. ZETIA [Concomitant]
     Active Substance: EZETIMIBE
  5. CLOBETASOL [Concomitant]
     Active Substance: CLOBETASOL
  6. MULTIVITAMIN                       /00097801/ [Concomitant]
     Active Substance: VITAMINS
  7. PROBIOTICS NOS [Concomitant]
     Active Substance: PROBIOTICS NOS
     Indication: FLATULENCE
  8. JAKAFI [Suspect]
     Active Substance: RUXOLITINIB
     Indication: POLYCYTHAEMIA VERA
     Dosage: 10 MG, BID
     Route: 048
     Dates: start: 20150522
  9. FIBER CHOICE PLUS CALCIUM [Concomitant]
  10. TRIAMCINOLONE [Concomitant]
     Active Substance: TRIAMCINOLONE
  11. FISH OIL [Concomitant]
     Active Substance: FISH OIL
  12. VITAMIN B COMPLEX [Concomitant]
     Active Substance: CYANOCOBALAMIN\DEXPANTHENOL\NIACINAMIDE\PYRIDOXINE HYDROCHLORIDE\RIBOFLAVIN 5^-PHOSPHATE SODIUM\THIAMINE HYDROCHLORIDE\VITAMIN B COMPLEX
  13. FLUTICASONE [Concomitant]
     Active Substance: FLUTICASONE\FLUTICASONE PROPIONATE
  14. SIMVASTATIN. [Concomitant]
     Active Substance: SIMVASTATIN
  15. PROBIOTICS NOS [Concomitant]
     Active Substance: PROBIOTICS NOS
     Indication: ABDOMINAL DISTENSION

REACTIONS (4)
  - Anaemia [Recovered/Resolved]
  - Malaise [Unknown]
  - Fatigue [Recovered/Resolved]
  - Platelet count increased [Unknown]

NARRATIVE: CASE EVENT DATE: 201506
